FAERS Safety Report 11669928 (Version 2)
Quarter: 2016Q1

REPORT INFORMATION
  Report Type: Report from Study
  Country: CA (occurrence: CA)
  Receive Date: 20151027
  Receipt Date: 20160310
  Transmission Date: 20160525
  Serious: Yes (Hospitalization, Disabling, Other)
  Sender: FDA-Public Use
  Company Number: CA-AMGEN-CANSL2015111086

PATIENT
  Age: 83 Year
  Sex: Female

DRUGS (2)
  1. PROLIA [Suspect]
     Active Substance: DENOSUMAB
     Indication: OSTEOPOROSIS
     Dosage: UNK
     Route: 065
     Dates: start: 2011
  2. VITAMINS                           /00067501/ [Concomitant]
     Active Substance: VITAMINS
     Dosage: UNK

REACTIONS (12)
  - Ankle fracture [Unknown]
  - Pain [Unknown]
  - Musculoskeletal disorder [Unknown]
  - Protein C deficiency [Unknown]
  - Superficial siderosis of central nervous system [Unknown]
  - Loss of control of legs [Unknown]
  - Abasia [Unknown]
  - Bone disorder [Unknown]
  - Lower limb fracture [Unknown]
  - Dysstasia [Unknown]
  - Bedridden [Unknown]
  - Central nervous system haemorrhage [Unknown]

NARRATIVE: CASE EVENT DATE: 2011
